FAERS Safety Report 21978159 (Version 1)
Quarter: 2023Q1

REPORT INFORMATION
  Report Type: Spontaneous
  Country: US (occurrence: US)
  Receive Date: 20230210
  Receipt Date: 20230210
  Transmission Date: 20230418
  Serious: Yes (Other)
  Sender: FDA-Public Use
  Company Number: US-PFIZER INC-202300059503

PATIENT

DRUGS (1)
  1. PROTONIX [Suspect]
     Active Substance: PANTOPRAZOLE SODIUM
     Indication: Abdominal discomfort
     Dosage: UNK

REACTIONS (9)
  - Eye haemorrhage [Unknown]
  - Cerebrovascular accident [Unknown]
  - Eye pain [Unknown]
  - Condition aggravated [Unknown]
  - Cardiac disorder [Unknown]
  - Abdominal pain upper [Unknown]
  - Abdominal discomfort [Unknown]
  - Ocular hyperaemia [Unknown]
  - Malaise [Unknown]

NARRATIVE: CASE EVENT DATE: 20230201
